FAERS Safety Report 23135470 (Version 2)
Quarter: 2023Q4

REPORT INFORMATION
  Report Type: Spontaneous
  Country: US (occurrence: US)
  Receive Date: 20231101
  Receipt Date: 20231207
  Transmission Date: 20240109
  Serious: No
  Sender: FDA-Public Use
  Company Number: US-BAYER-2023A153341

PATIENT
  Age: 68 Year
  Sex: Male

DRUGS (17)
  1. NUBEQA [Suspect]
     Active Substance: DAROLUTAMIDE
     Dosage: UNK
     Route: 048
     Dates: end: 20230929
  2. ORGOVYX [Suspect]
     Active Substance: RELUGOLIX
     Indication: Prostate cancer
     Dosage: 360 MG, QD
     Dates: start: 20230910, end: 20230910
  3. ORGOVYX [Suspect]
     Active Substance: RELUGOLIX
     Indication: Prostate cancer
     Dosage: 120 MG, QD
     Dates: start: 20230911, end: 20230929
  4. TYLENOL EXTRA STRENGTH [Concomitant]
     Active Substance: ACETAMINOPHEN
     Dosage: UNK
  5. MORINGA [MORINGA OLEIFERA] [Concomitant]
     Dosage: UNK
  6. NORVASC [Concomitant]
     Active Substance: AMLODIPINE BESYLATE
     Dosage: UNK
  7. ASPIRIN [Concomitant]
     Active Substance: ASPIRIN
     Dosage: UNK
  8. ATENOLOL [Concomitant]
     Active Substance: ATENOLOL
     Dosage: UNK
  9. LIPITOR [Concomitant]
     Active Substance: ATORVASTATIN CALCIUM
     Dosage: UNK
  10. PLAVIX [Concomitant]
     Active Substance: CLOPIDOGREL BISULFATE
     Dosage: UNK
  11. COLCRYS [Concomitant]
     Active Substance: COLCHICINE
     Dosage: UNK
  12. ALUMINUM HYDROXIDE\MAGNESIUM CARBONATE [Concomitant]
     Active Substance: ALUMINUM HYDROXIDE\MAGNESIUM CARBONATE
     Dosage: UNK
  13. GLIPIZIDE [Concomitant]
     Active Substance: GLIPIZIDE
     Dosage: UNK
  14. MUPIROCIN [Concomitant]
     Active Substance: MUPIROCIN
     Dosage: UNK
  15. LANTUS [Concomitant]
     Active Substance: INSULIN GLARGINE
     Dosage: UNK
  16. HUMALOG [Concomitant]
     Active Substance: INSULIN LISPRO
     Dosage: UNK
  17. NOVOLOG [Concomitant]
     Active Substance: INSULIN ASPART
     Dosage: UNK

REACTIONS (3)
  - Chest discomfort [Recovered/Resolved]
  - Hot flush [Unknown]
  - Breast enlargement [Unknown]
